FAERS Safety Report 6687901-9 (Version None)
Quarter: 2010Q2

REPORT INFORMATION
  Report Type: 
  Country: None (occurrence: None)
  Receive Date: 20100420
  Receipt Date: 20100412
  Transmission Date: 20101027
  Serious: Yes (Other)
  Sender: FDA-Public Use
  Company Number: US-ASTRAZENECA-2009UW19054

PATIENT
  Sex: Female

DRUGS (8)
  1. SEROQUEL [Suspect]
     Route: 048
     Dates: start: 20060629
  2. EFFEXOR [Concomitant]
     Dates: start: 20060629
  3. METFORMIN HCL [Concomitant]
     Dates: start: 20060629
  4. VOLTAREN [Concomitant]
     Dates: start: 20060629
  5. TRAZODONE HCL [Concomitant]
     Dates: start: 20060629
  6. REMERON [Concomitant]
     Dates: start: 20060629
  7. NORFLEX [Concomitant]
     Dates: start: 20060629
  8. VICODIN [Concomitant]
     Dates: start: 20060629

REACTIONS (2)
  - DIABETES MELLITUS [None]
  - NEUROPATHY PERIPHERAL [None]
